FAERS Safety Report 7539812-4 (Version None)
Quarter: 2011Q2

REPORT INFORMATION
  Report Type: 
  Country: None (occurrence: None)
  Receive Date: 20110610
  Receipt Date: 20110607
  Transmission Date: 20111010
  Serious: Yes (Death)
  Sender: FDA-Public Use
  Company Number: PHHY2011US49693

PATIENT
  Sex: Male

DRUGS (1)
  1. DIOVAN HCT [Suspect]
     Dosage: 1 DF, QD 1 DF (160 MG OF VALSARTAN/UNKNOWN MG OF HYDROCHLOROTHIAZIDE)

REACTIONS (1)
  - DEATH [None]
